FAERS Safety Report 6007259-8 (Version None)
Quarter: 2008Q4

REPORT INFORMATION
  Report Type: 
  Country: None (occurrence: None)
  Receive Date: 20081217
  Receipt Date: 20080204
  Transmission Date: 20090506
  Serious: No
  Sender: FDA-Public Use
  Company Number: US-ASTRAZENECA-2008UW02467

PATIENT
  Age: 71 Year
  Sex: Female
  Weight: 72.6 kg

DRUGS (4)
  1. CRESTOR [Suspect]
     Indication: BLOOD CHOLESTEROL
     Route: 048
     Dates: start: 20080113
  2. MINOCYCLINE HCL [Concomitant]
  3. MULTI-VITAMIN [Concomitant]
  4. IBUPROFEN [Concomitant]

REACTIONS (1)
  - FAECES PALE [None]
